APPROVED DRUG PRODUCT: SODIUM PHOSPHATES
Active Ingredient: SODIUM PHOSPHATE, DIBASIC, HEPTAHYDRATE; SODIUM PHOSPHATE, MONOBASIC, MONOHYDRATE
Strength: 4.02GM/15ML;4.14GM/15ML (268MG/ML;276MG/ML)
Dosage Form/Route: SOLUTION;INTRAVENOUS
Application: A209997 | Product #002 | TE Code: AP
Applicant: FRESENIUS KABI USA LLC
Approved: Mar 30, 2022 | RLD: No | RS: No | Type: RX